FAERS Safety Report 7861320-1 (Version None)
Quarter: 2011Q4

REPORT INFORMATION
  Report Type: 
  Country: None (occurrence: None)
  Receive Date: 20111027
  Receipt Date: 20111022
  Transmission Date: 20120403
  Serious: Yes (Other)
  Sender: FDA-Public Use
  Company Number: US-PFIZER INC-2011257236

PATIENT
  Age: 75 Year
  Sex: Female

DRUGS (1)
  1. FLECTOR [Suspect]
     Indication: TENDONITIS
     Dosage: UNK, DAILY
     Route: 062
     Dates: start: 20111018

REACTIONS (4)
  - SWELLING FACE [None]
  - DYSPNOEA [None]
  - NASAL OEDEMA [None]
  - FEELING HOT [None]
